FAERS Safety Report 17459280 (Version 1)
Quarter: 2020Q1

REPORT INFORMATION
  Report Type: Spontaneous
  Country: US (occurrence: US)
  Receive Date: 20200212
  Receipt Date: 20200212
  Transmission Date: 20200409
  Serious: No
  Sender: FDA-Public Use
  Company Number: None

PATIENT
  Age: 33 Month
  Sex: Female

DRUGS (3)
  1. SSKI [Concomitant]
     Active Substance: POTASSIUM IODIDE
  2. LEUKINE [Suspect]
     Active Substance: SARGRAMOSTIM
     Indication: ADRENAL GLAND CANCER
     Route: 058
     Dates: start: 20190531
  3. LORAZEPAM. [Concomitant]
     Active Substance: LORAZEPAM

REACTIONS (1)
  - Hospitalisation [None]

NARRATIVE: CASE EVENT DATE: 20200203
